FAERS Safety Report 4334092-5 (Version None)
Quarter: 2004Q2

REPORT INFORMATION
  Report Type: 
  Country: None (occurrence: None)
  Receive Date: 20040402
  Receipt Date: 20040318
  Transmission Date: 20050107
  Serious: Yes (Hospitalization)
  Sender: FDA-Public Use
  Company Number: S04-SWI-00374-01

PATIENT
  Age: 81 Year
  Sex: Female

DRUGS (8)
  1. CIPRALEX (ESCITALOPRAM) [Suspect]
     Dosage: 20 MG QD PO
     Route: 048
     Dates: start: 20031121, end: 20031204
  2. CIPRALEX (ESCITALOPRAM) [Suspect]
     Dosage: 10 MG QD PO
     Route: 048
     Dates: start: 20031101, end: 20031120
  3. REMERON [Suspect]
     Dosage: 15 MG QD PO
     Route: 048
     Dates: start: 20031001, end: 20031203
  4. REMERON [Suspect]
     Dosage: 30 MG QD PO
     Route: 048
     Dates: start: 20031204
  5. ZESTORETIC [Concomitant]
  6. FURSOL (FUROSEMIDE) [Concomitant]
  7. NORVASC [Concomitant]
  8. DIGOXIN [Concomitant]

REACTIONS (10)
  - AFFECT LABILITY [None]
  - AGGRESSION [None]
  - AGITATION [None]
  - CRYING [None]
  - DEPRESSION [None]
  - JUDGEMENT IMPAIRED [None]
  - MEMORY IMPAIRMENT [None]
  - PSYCHOMOTOR AGITATION [None]
  - RESTLESSNESS [None]
  - SUICIDAL IDEATION [None]
